FAERS Safety Report 7806706-6 (Version None)
Quarter: 2011Q4

REPORT INFORMATION
  Report Type: 
  Country: None (occurrence: None)
  Receive Date: 20111011
  Receipt Date: 20100611
  Transmission Date: 20120403
  Serious: Yes (Hospitalization)
  Sender: FDA-Public Use
  Company Number: US-JNJFOC-20110911783

PATIENT
  Sex: Female

DRUGS (2)
  1. CHILDREN'S MOTRIN [Suspect]
     Indication: PRODUCT USED FOR UNKNOWN INDICATION
     Route: 065
  2. CHILDREN'S MOTRIN [Suspect]
     Route: 065

REACTIONS (2)
  - PRODUCT QUALITY ISSUE [None]
  - HOSPITALISATION [None]
